FAERS Safety Report 9542967 (Version 1)
Quarter: 2013Q2

REPORT INFORMATION
  Report Type: Spontaneous
  Country: US (occurrence: None)
  Receive Date: 20130524
  Receipt Date: 20130524
  Transmission Date: 20140414
  Serious: No
  Sender: FDA-Public Use
  Company Number: PHEH2013US001174

PATIENT
  Age: 59 Year
  Sex: Female
  Weight: 70.3 kg

DRUGS (13)
  1. GILENYA [Suspect]
     Indication: MULTIPLE SCLEROSIS
     Route: 048
     Dates: start: 20130110
  2. KEPPRA (LEVETIRACETAM) [Concomitant]
  3. LYRICA (PREGABALIN) [Concomitant]
  4. POTASSIUM CHLORIDE (POTASSIUM CHLORIDE) [Concomitant]
  5. FUROSEMIDE (FUROSEMIDE) [Concomitant]
  6. OXYCONTIN (OXYCODONE HYDROCHLORIDE) [Concomitant]
  7. OXYCODONE (OXYCODONE) [Concomitant]
  8. BUPROPION (BUPROPION) [Concomitant]
  9. DEPLIN (CALCIUM LEVOMEFOLATE) [Concomitant]
  10. CYMBALTA (DULOXETINE HYDROCHLORIDE) [Concomitant]
  11. EVISTA (RALOXIFENE HYDROCHLORIDE) [Concomitant]
  12. SINGULAIR [Concomitant]
  13. CRESTOR (ROSUVASTATIN CALCIUM) [Concomitant]

REACTIONS (8)
  - Insomnia [None]
  - Speech disorder [None]
  - Expressive language disorder [None]
  - Hypersomnia [None]
  - Somnolence [None]
  - Fatigue [None]
  - Dizziness [None]
  - Back pain [None]
